FAERS Safety Report 13887705 (Version 1)
Quarter: 2017Q3

REPORT INFORMATION
  Report Type: Not Available
  Country: US (occurrence: US)
  Receive Date: 20170821
  Receipt Date: 20170821
  Transmission Date: 20171127
  Serious: No
  Sender: FDA-Public Use
  Company Number: US-HISAMITSU-2017-US-006929

PATIENT
  Age: 59 Year
  Sex: Female
  Weight: 81.65 kg

DRUGS (14)
  1. PYRIDOSTIGMINE [Concomitant]
     Active Substance: PYRIDOSTIGMINE
  2. BACLOFEN. [Concomitant]
     Active Substance: BACLOFEN
  3. LABETOLOL [Concomitant]
     Active Substance: LABETALOL HYDROCHLORIDE
  4. CALCIUM [Concomitant]
     Active Substance: CALCIUM
  5. SALONPAS PAIN RELIEF [Suspect]
     Active Substance: MENTHOL\METHYL SALICYLATE
     Dosage: 1 PATCH TO NECK FOR 2.5 HOURS
     Route: 061
     Dates: start: 20170615, end: 20170615
  6. TAMSULOSIN [Concomitant]
     Active Substance: TAMSULOSIN
  7. VITAMIN B12 [Concomitant]
     Active Substance: CYANOCOBALAMIN
  8. KEPPRA [Concomitant]
     Active Substance: LEVETIRACETAM
  9. CALCITRIOL. [Concomitant]
     Active Substance: CALCITRIOL
  10. FUROSEMIDE. [Concomitant]
     Active Substance: FUROSEMIDE
  11. ASPIRIN. [Concomitant]
     Active Substance: ASPIRIN
  12. LEVOTHYROXINE. [Concomitant]
     Active Substance: LEVOTHYROXINE
  13. PRAVASTATIN. [Concomitant]
     Active Substance: PRAVASTATIN
  14. ALLOPURINOL. [Concomitant]
     Active Substance: ALLOPURINOL

REACTIONS (2)
  - Application site erythema [Not Recovered/Not Resolved]
  - Application site warmth [Unknown]

NARRATIVE: CASE EVENT DATE: 20170615
